FAERS Safety Report 8224789-9 (Version None)
Quarter: 2012Q1

REPORT INFORMATION
  Report Type: 
  Country: None (occurrence: None)
  Receive Date: 20120321
  Receipt Date: 20120319
  Transmission Date: 20120608
  Serious: Yes (Hospitalization)
  Sender: FDA-Public Use
  Company Number: CN-ROCHE-1050333

PATIENT
  Age: 47 Year
  Sex: Male
  Weight: 90 kg

DRUGS (5)
  1. MABTHERA [Suspect]
     Indication: B-CELL LYMPHOMA
     Route: 041
     Dates: start: 20111018
  2. CYCLOPHOSPHAMIDE [Concomitant]
     Indication: B-CELL LYMPHOMA
     Route: 041
     Dates: start: 20111018
  3. PREDNISONE [Concomitant]
     Indication: B-CELL LYMPHOMA
     Route: 048
     Dates: start: 20111018
  4. ADRIAMYCIN PFS [Concomitant]
     Indication: B-CELL LYMPHOMA
     Route: 041
     Dates: start: 20111018
  5. VINCRISTINE [Concomitant]
     Indication: B-CELL LYMPHOMA
     Route: 041
     Dates: start: 20111018

REACTIONS (1)
  - TRANSAMINASES INCREASED [None]
